FAERS Safety Report 14523594 (Version 1)
Quarter: 2018Q1

REPORT INFORMATION
  Report Type: Spontaneous
  Country: CA (occurrence: CA)
  Receive Date: 20180212
  Receipt Date: 20180212
  Transmission Date: 20180509
  Serious: Yes (Disabling, Other)
  Sender: FDA-Public Use
  Company Number: CA-ENDO PHARMACEUTICALS INC-2018-016820

PATIENT
  Age: 49 Year
  Sex: Female

DRUGS (10)
  1. ESCITALOPRAM [Suspect]
     Active Substance: ESCITALOPRAM OXALATE
     Indication: PRODUCT USED FOR UNKNOWN INDICATION
     Dosage: 60 MG, OD
     Route: 065
  2. VASOSTRICT [Suspect]
     Active Substance: VASOPRESSIN
     Indication: BLOOD PRESSURE MEASUREMENT
     Dosage: UNK UNK, UNKNOWN
     Route: 065
  3. NOREPINEPHRINE BITARTRATE. [Suspect]
     Active Substance: NOREPINEPHRINE BITARTRATE
     Indication: BLOOD PRESSURE MEASUREMENT
     Dosage: 30 MCG, UNKNOWN
     Route: 065
  4. ACTIVATED CHARCOAL [Concomitant]
     Active Substance: ACTIVATED CHARCOAL
     Indication: GASTRIC LAVAGE
     Dosage: 50 G, UNKNOWN
     Route: 065
  5. GLUCOSE [Suspect]
     Active Substance: DEXTROSE
     Indication: RESUSCITATION
     Dosage: UNK UNK, UNKNOWN
     Route: 065
  6. ADRENALIN [Suspect]
     Active Substance: EPINEPHRINE
     Indication: BLOOD PRESSURE MEASUREMENT
     Dosage: 30 MCG, UNKNOWN
     Route: 065
  7. AMLODIPINE [Suspect]
     Active Substance: AMLODIPINE BESYLATE
     Indication: PRODUCT USED FOR UNKNOWN INDICATION
     Dosage: 150 MG, OD
     Route: 065
  8. RISPERIDONE. [Suspect]
     Active Substance: RISPERIDONE
     Indication: PRODUCT USED FOR UNKNOWN INDICATION
     Dosage: 6 MG, OD
     Route: 065
  9. INSULIN [Concomitant]
     Active Substance: INSULIN NOS
     Indication: PRODUCT USED FOR UNKNOWN INDICATION
     Dosage: UNK UNK, UNKNOWN
     Route: 040
  10. INSULIN [Concomitant]
     Active Substance: INSULIN NOS
     Dosage: 70 IU, UNKNOWN
     Route: 065

REACTIONS (14)
  - Hypoglycaemia [Not Recovered/Not Resolved]
  - Hypotension [Not Recovered/Not Resolved]
  - Reversible cerebral vasoconstriction syndrome [Not Recovered/Not Resolved]
  - Anuria [Not Recovered/Not Resolved]
  - Tachycardia [Not Recovered/Not Resolved]
  - Pulmonary oedema [Not Recovered/Not Resolved]
  - Altered state of consciousness [Not Recovered/Not Resolved]
  - Hyperdynamic left ventricle [Not Recovered/Not Resolved]
  - Optic atrophy [Not Recovered/Not Resolved]
  - Toxicity to various agents [Not Recovered/Not Resolved]
  - Intentional overdose [Not Recovered/Not Resolved]
  - Off label use [Not Recovered/Not Resolved]
  - Hypokalaemia [Not Recovered/Not Resolved]
  - Shock [Not Recovered/Not Resolved]
